FAERS Safety Report 4924713-8 (Version None)
Quarter: 2006Q1

REPORT INFORMATION
  Report Type: 
  Country: None (occurrence: None)
  Receive Date: 20060222
  Receipt Date: 20060210
  Transmission Date: 20060701
  Serious: Yes (Life-Threatening)
  Sender: FDA-Public Use
  Company Number: 06H-087-0305147-00

PATIENT
  Age: 75 Year
  Sex: Male
  Weight: 49 kg

DRUGS (7)
  1. VECURONIUM BROMIDE [Suspect]
     Indication: GENERAL ANAESTHESIA
     Dosage: 5 MG
  2. PENTOTHAL [Suspect]
     Indication: GENERAL ANAESTHESIA
  3. SEVOFLURANE [Suspect]
     Indication: MAINTENANCE OF ANAESTHESIA
     Dosage: INHALATION
     Route: 055
  4. FAMOTIDINE [Concomitant]
  5. ATROPINE [Concomitant]
  6. MEPERIDINE HCL [Concomitant]
  7. OXYGEN (OXYGEN) [Concomitant]

REACTIONS (11)
  - ANAESTHETIC COMPLICATION CARDIAC [None]
  - ANAESTHETIC COMPLICATION VASCULAR [None]
  - ARRHYTHMIA [None]
  - ATRIOVENTRICULAR BLOCK [None]
  - BRADYCARDIA [None]
  - BUNDLE BRANCH BLOCK LEFT [None]
  - CIRCULATORY COLLAPSE [None]
  - ELECTROCARDIOGRAM QRS COMPLEX PROLONGED [None]
  - MYOCARDIAL INFARCTION [None]
  - SINUS ARREST [None]
  - VENTRICULAR TACHYCARDIA [None]
